FAERS Safety Report 10880686 (Version 2)
Quarter: 2015Q1

REPORT INFORMATION
  Report Type: Spontaneous
  Country: US (occurrence: None)
  Receive Date: 20150225
  Receipt Date: 20150325
  Transmission Date: 20150721
  Serious: Yes (Hospitalization)
  Sender: FDA-Public Use
  Company Number: 1713747-2015-99952

PATIENT
  Age: 38 Year
  Sex: Female
  Weight: 66 kg

DRUGS (26)
  1. 160NRE OPTIFLUX [Concomitant]
  2. NORMAL SALINE [Concomitant]
     Active Substance: SODIUM CHLORIDE
  3. ZOLOFT [Concomitant]
     Active Substance: SERTRALINE HYDROCHLORIDE
  4. HUMALOG [Concomitant]
     Active Substance: INSULIN LISPRO
  5. LANTUS [Concomitant]
     Active Substance: INSULIN GLARGINE
  6. COREG [Concomitant]
     Active Substance: CARVEDILOL
  7. FMC BLOOD LINES [Concomitant]
  8. NATURALYTE [Concomitant]
     Active Substance: ACETIC ACID\SODIUM ACETATE
  9. EPOGEN [Concomitant]
     Active Substance: ERYTHROPOIETIN
  10. CALCIFEROL [Concomitant]
     Active Substance: ERGOCALCIFEROL
  11. NORVASC [Concomitant]
     Active Substance: AMLODIPINE BESYLATE
  12. BABY ASPIRIN [Concomitant]
     Active Substance: ASPIRIN
  13. GABAPENTIN. [Concomitant]
     Active Substance: GABAPENTIN
  14. 0.9% SODIUM CHLORIDE INJECTION, USP IN MINI-BAG PLUS CONTAINER [Suspect]
     Active Substance: SODIUM CHLORIDE
     Indication: CHRONIC KIDNEY DISEASE
     Dosage: HEMODIALYSIS
     Route: 010
     Dates: start: 20131011
  15. ZEMPLAR [Concomitant]
     Active Substance: PARICALCITOL
  16. TRAZODONE [Concomitant]
     Active Substance: TRAZODONE HYDROCHLORIDE
  17. NEURONTIN [Concomitant]
     Active Substance: GABAPENTIN
  18. GRANUFLO [Concomitant]
     Active Substance: ACETIC ACID\SODIUM ACETATE
  19. NEPHRO-CAPS [Concomitant]
  20. LISINOPRIL. [Concomitant]
     Active Substance: LISINOPRIL
  21. FRESENIUS 2008K DIALYSIS MACHINE [Concomitant]
  22. SODIUM BICARBONATE. [Concomitant]
     Active Substance: SODIUM BICARBONATE
  23. TUMS [Concomitant]
     Active Substance: CALCIUM CARBONATE
  24. LOVENOX [Concomitant]
     Active Substance: ENOXAPARIN SODIUM
  25. COUMADIN [Concomitant]
     Active Substance: WARFARIN SODIUM
  26. RENVELA [Concomitant]
     Active Substance: SEVELAMER CARBONATE

REACTIONS (4)
  - Hypotension [None]
  - Syncope [None]
  - Seizure [None]
  - Unresponsive to stimuli [None]

NARRATIVE: CASE EVENT DATE: 20131011
